FAERS Safety Report 21759234 (Version 3)
Quarter: 2023Q2

REPORT INFORMATION
  Report Type: Spontaneous
  Country: US (occurrence: US)
  Receive Date: 20221221
  Receipt Date: 20230519
  Transmission Date: 20230721
  Serious: No
  Sender: FDA-Public Use
  Company Number: US-BAUSCH-BL-2022-027179

PATIENT
  Age: 75 Year
  Sex: Male
  Weight: 74.91 kg

DRUGS (5)
  1. UCERIS [Suspect]
     Active Substance: BUDESONIDE
     Indication: Proctitis
     Dosage: FOR PREVIOUS FLARE TWICE DAILY
     Route: 065
  2. UCERIS [Suspect]
     Active Substance: BUDESONIDE
     Indication: Product use in unapproved indication
     Route: 065
  3. UCERIS [Suspect]
     Active Substance: BUDESONIDE
     Dosage: 1, QD, DAILY
     Route: 065
  4. ELIQUIS [Concomitant]
     Active Substance: APIXABAN
     Indication: Product used for unknown indication
  5. BALSALAZIDE [Concomitant]
     Active Substance: BALSALAZIDE
     Indication: Product used for unknown indication

REACTIONS (5)
  - Administration site pain [Recovered/Resolved]
  - Product use issue [Unknown]
  - Product use in unapproved indication [Unknown]
  - Product administration error [Unknown]
  - Suspected product quality issue [Unknown]
